FAERS Safety Report 8951010 (Version 1)
Quarter: 2012Q4

REPORT INFORMATION
  Report Type: Spontaneous
  Country: DK (occurrence: None)
  Receive Date: 20121129
  Receipt Date: 20121129
  Transmission Date: 20130627
  Serious: Yes (Hospitalization)
  Sender: FDA-Public Use
  Company Number: 2012MA013565

PATIENT
  Age: 62 Year
  Sex: Male

DRUGS (4)
  1. SERTRALINE HYDROCHLORIDE [Suspect]
     Indication: DEPRESSION
  2. BENDROFLUMETHIAZIDE [Suspect]
     Indication: HYPERTENSION
  3. ATENOLOL [Suspect]
     Indication: HYPERTENSION
     Route: 048
  4. ENALAPRIL [Suspect]
     Indication: HYPERTENSION
     Route: 048

REACTIONS (3)
  - Hyponatraemia [None]
  - Inappropriate antidiuretic hormone secretion [None]
  - Product quality issue [None]
